FAERS Safety Report 15698569 (Version 8)
Quarter: 2021Q4

REPORT INFORMATION
  Report Type: Report from Study
  Country: JP (occurrence: None)
  Receive Date: 20181207
  Receipt Date: 20211113
  Transmission Date: 20220303
  Serious: Yes (Hospitalization)
  Sender: FDA-Public Use
  Company Number: JP-ROCHE-2224226

PATIENT
  Age: 68 Year
  Sex: Male
  Weight: 53.4 kg

DRUGS (14)
  1. PLACEBO [Suspect]
     Active Substance: UNSPECIFIED INGREDIENT
     Indication: Diffuse large B-cell lymphoma
     Dosage: DATE OF MOST RECENT DOSE SAE ONSET 08/NOV/2018
     Route: 042
     Dates: start: 20181108
  2. VINCRISTINE [Suspect]
     Active Substance: VINCRISTINE
     Indication: Diffuse large B-cell lymphoma
     Dosage: DATE OF MOST RECENT DOSE OF VINCRISTINE PRIOR TO SERIOUS ADVERSE EVENT ONSET: 08/NOV/2018.(2 MG)
     Route: 042
     Dates: start: 20181108
  3. RITUXIMAB [Suspect]
     Active Substance: RITUXIMAB
     Indication: Diffuse large B-cell lymphoma
     Dosage: 577 MG?DATE OF MOST RECENT DOSE OF RITUXIMAB PRIOR TO SERIOUS ADVERSE EVENT ONSET: 07/NOV/2018 (577
     Route: 042
     Dates: start: 20181107
  4. DOXORUBICIN [Suspect]
     Active Substance: DOXORUBICIN
     Indication: Diffuse large B-cell lymphoma
     Dosage: 77 MG?DATE OF MOST RECENT DOSE OF DOXORUBICIN PRIOR TO SERIOUS ADVERSE EVENT ONSET: 08/NOV/2018 (77
     Route: 042
     Dates: start: 20181108
  5. CYCLOPHOSPHAMIDE [Suspect]
     Active Substance: CYCLOPHOSPHAMIDE
     Indication: Diffuse large B-cell lymphoma
     Dosage: 1154 MG?DATE OF MOST RECENT DOSE OF CYCLOPHOSPHAMIDE PRIOR TO SERIOUS ADVERSE EVENT ONSET 08/NOV/201
     Route: 042
     Dates: start: 20181108
  6. PREDNISONE [Suspect]
     Active Substance: PREDNISONE
     Indication: Diffuse large B-cell lymphoma
     Dosage: DATE OF MOST RECENT DOSE OF PREDNISONE PRIOR TO SERIOUS ADVERSE EVENT ONSET: 11/NOV/2018 (100 MG)?10
     Route: 048
     Dates: start: 20181107
  7. LOXOPROFEN SODIUM DIHYDRATE [Concomitant]
     Active Substance: LOXOPROFEN SODIUM DIHYDRATE
     Route: 048
     Dates: start: 201810, end: 20181031
  8. ACETAMINOPHEN [Concomitant]
     Active Substance: ACETAMINOPHEN
     Route: 048
     Dates: start: 20181102, end: 20181120
  9. ACETAMINOPHEN [Concomitant]
     Active Substance: ACETAMINOPHEN
     Route: 048
     Dates: start: 20181107, end: 20190410
  10. DIFLUPREDNATE [Concomitant]
     Active Substance: DIFLUPREDNATE
     Indication: Dermatitis contact
     Dosage: 1 OTHER
     Route: 061
     Dates: start: 20181106, end: 20181125
  11. DEXCHLORPHENIRAMINE MALEATE [Concomitant]
     Active Substance: DEXCHLORPHENIRAMINE MALEATE
     Indication: Allergy prophylaxis
     Route: 048
     Dates: start: 20181107, end: 20190410
  12. PALONOSETRON HYDROCHLORIDE [Concomitant]
     Active Substance: PALONOSETRON HYDROCHLORIDE
     Indication: Nausea
     Route: 042
     Dates: start: 20181108, end: 20190228
  13. FEBUXOSTAT [Concomitant]
     Active Substance: FEBUXOSTAT
     Route: 048
     Dates: start: 20181107, end: 20181129
  14. FILGRASTIM [Concomitant]
     Active Substance: FILGRASTIM
     Indication: Febrile neutropenia
     Route: 042
     Dates: start: 20181120, end: 20181123

REACTIONS (1)
  - Subileus [Recovered/Resolved]

NARRATIVE: CASE EVENT DATE: 20181120
